FAERS Safety Report 9689070 (Version 2)
Quarter: 2013Q4

REPORT INFORMATION
  Report Type: Spontaneous
  Country: CA (occurrence: CA)
  Receive Date: 20131114
  Receipt Date: 20131120
  Transmission Date: 20140711
  Serious: Yes (Death, Hospitalization, Other)
  Sender: FDA-Public Use
  Company Number: CA-TEVA-443967USA

PATIENT
  Age: 69 Year
  Sex: Male
  Weight: 69.3 kg

DRUGS (4)
  1. BENDAMUSTINE [Suspect]
     Indication: DIFFUSE LARGE B-CELL LYMPHOMA
     Route: 042
     Dates: start: 20131028, end: 20131029
  2. CODEINE [Concomitant]
  3. COUGH SYRUP [Concomitant]
  4. TYLENOL [Concomitant]

REACTIONS (3)
  - Death [Fatal]
  - Pulmonary function test decreased [Unknown]
  - Off label use [Unknown]
